FAERS Safety Report 6979560-2 (Version None)
Quarter: 2010Q3

REPORT INFORMATION
  Report Type: 
  Country: None (occurrence: None)
  Receive Date: 20100913
  Receipt Date: 20100901
  Transmission Date: 20110219
  Serious: Yes (Other)
  Sender: FDA-Public Use
  Company Number: US-AMGEN-QUU435803

PATIENT
  Sex: Female
  Weight: 61.7 kg

DRUGS (2)
  1. NPLATE [Suspect]
     Indication: IDIOPATHIC THROMBOCYTOPENIC PURPURA
     Dates: start: 20090312, end: 20090507
  2. PLATELETS [Concomitant]
     Dates: start: 20090312

REACTIONS (2)
  - ANKLE FRACTURE [None]
  - CHRONIC LYMPHOCYTIC LEUKAEMIA [None]
